FAERS Safety Report 13440060 (Version 3)
Quarter: 2018Q4

REPORT INFORMATION
  Report Type: Report from Study
  Country: CN (occurrence: CN)
  Receive Date: 20170413
  Receipt Date: 20181220
  Transmission Date: 20190204
  Serious: Yes (Other)
  Sender: FDA-Public Use
  Company Number: PHHY2017CN053910

PATIENT
  Age: 52 Year
  Sex: Female

DRUGS (88)
  1. METHYLPREDNISOLONE. [Suspect]
     Active Substance: METHYLPREDNISOLONE
     Dosage: 40 MG, QD
     Route: 065
     Dates: start: 20170304, end: 20170307
  2. TACROLIMUS. [Suspect]
     Active Substance: TACROLIMUS
     Dosage: 3 MG, QD
     Route: 065
     Dates: start: 20170324, end: 20170331
  3. BICYCLOL [Concomitant]
     Active Substance: BICYCLOL
     Indication: HEPATIC FUNCTION ABNORMAL
     Dosage: 25 MG, TID
     Route: 048
     Dates: start: 20170301, end: 20170304
  4. PROMETHAZINE [Concomitant]
     Active Substance: PROMETHAZINE\PROMETHAZINE HYDROCHLORIDE
     Dosage: 1 DF, TID
     Route: 048
     Dates: start: 20170324, end: 20170401
  5. FUROSEMIDE. [Concomitant]
     Active Substance: FUROSEMIDE
     Dosage: 40 MG, QD
     Route: 042
     Dates: start: 20170307, end: 20170313
  6. GANCICLOVIR. [Concomitant]
     Active Substance: GANCICLOVIR
     Indication: PRODUCT USED FOR UNKNOWN INDICATION
     Dosage: 500 MG, QD
     Route: 048
     Dates: start: 20170313
  7. HEPARIN SODIUM. [Concomitant]
     Active Substance: HEPARIN SODIUM
     Indication: PROPHYLAXIS
     Dosage: 12500 IU, W1D3
     Route: 042
     Dates: start: 20170302, end: 20170313
  8. RECOMBINANT HUMAN ERYTHROPOIETIN [Concomitant]
     Active Substance: ERYTHROPOIETIN
     Indication: COAGULOPATHY
     Dosage: 6000 MG, W3D1
     Route: 042
     Dates: start: 20170306, end: 20170307
  9. SODIUM BICARBONATE. [Concomitant]
     Active Substance: SODIUM BICARBONATE
     Indication: PRODUCT USED FOR UNKNOWN INDICATION
     Dosage: 1000 MG, BID
     Route: 048
     Dates: start: 20170308
  10. BERAPROST [Concomitant]
     Active Substance: BERAPROST
     Indication: PAIN
     Dosage: 20 UG, TID
     Route: 048
     Dates: start: 20170324, end: 20170401
  11. METHYLPREDNISOLONE. [Suspect]
     Active Substance: METHYLPREDNISOLONE
     Dosage: 320 MG, QD
     Route: 065
     Dates: start: 20170303, end: 20170303
  12. PREDNISONE. [Suspect]
     Active Substance: PREDNISONE
     Dosage: 10 MG, QD
     Route: 065
     Dates: start: 20170324, end: 20170410
  13. PREDNISONE. [Suspect]
     Active Substance: PREDNISONE
     Dosage: 20 MG, QD
     Route: 065
     Dates: start: 20170411
  14. TACROLIMUS. [Suspect]
     Active Substance: TACROLIMUS
     Indication: IMMUNOSUPPRESSANT DRUG THERAPY
     Dosage: 6 MG, QD
     Route: 065
     Dates: start: 20170228, end: 20170305
  15. TACROLIMUS. [Suspect]
     Active Substance: TACROLIMUS
     Dosage: 2 MG, QD
     Route: 065
     Dates: start: 20170401, end: 20170410
  16. ALPRAZOLAM. [Concomitant]
     Active Substance: ALPRAZOLAM
     Dosage: 0.4 MG, QD
     Route: 048
     Dates: start: 20170328, end: 20170403
  17. ALPROSTADIL. [Concomitant]
     Active Substance: ALPROSTADIL
     Indication: PERIPHERAL VASCULAR DISORDER
     Dosage: 20 UG, QD
     Route: 042
     Dates: start: 20170301, end: 20170313
  18. AMIKACIN. [Concomitant]
     Active Substance: AMIKACIN
     Indication: PROPHYLAXIS
     Dosage: 400 MG, PRN
     Route: 061
     Dates: start: 20170228, end: 20170228
  19. CALCIUM GLUCONATE. [Concomitant]
     Active Substance: CALCIUM GLUCONATE
     Dosage: 3000 MG, QD
     Route: 042
     Dates: start: 20170301, end: 20170302
  20. CLONIDINE. [Concomitant]
     Active Substance: CLONIDINE
     Dosage: 75 UG, TID
     Route: 048
     Dates: start: 20170311, end: 20170324
  21. DILTIAZEM HYDROCHLORIDE. [Concomitant]
     Active Substance: DILTIAZEM HYDROCHLORIDE
     Indication: DRUG LEVEL DECREASED
     Dosage: 30 MG, BID
     Route: 048
     Dates: start: 20170301
  22. ESOMEPRAZOLE MAGNESIUM. [Concomitant]
     Active Substance: ESOMEPRAZOLE MAGNESIUM
     Indication: GASTRITIS PROPHYLAXIS
     Dosage: 40 MG, BID
     Route: 042
     Dates: start: 20170301, end: 20170313
  23. METOPROLOL SUCCINATE. [Concomitant]
     Active Substance: METOPROLOL SUCCINATE
     Dosage: 47.5 MG, QD
     Route: 048
     Dates: start: 20170307
  24. NORVASC [Concomitant]
     Active Substance: AMLODIPINE BESYLATE
     Indication: BLOOD PRESSURE INCREASED
     Dosage: 5 MG, QD
     Route: 048
     Dates: start: 20170301, end: 20170304
  25. TACROLIMUS. [Suspect]
     Active Substance: TACROLIMUS
     Dosage: 5 MG, QD
     Route: 065
     Dates: start: 20170313, end: 20170322
  26. ALPROSTADIL. [Concomitant]
     Active Substance: ALPROSTADIL
     Dosage: 20 UG, QD
     Route: 042
     Dates: start: 20170328, end: 20170411
  27. BICYCLOL [Concomitant]
     Active Substance: BICYCLOL
     Indication: PROPHYLAXIS
     Dosage: 50 MG, TID
     Route: 048
     Dates: start: 20170305
  28. CLONIDINE. [Concomitant]
     Active Substance: CLONIDINE
     Dosage: 75 UG, PRN
     Route: 048
     Dates: start: 20170306, end: 20170306
  29. FUROSEMIDE. [Concomitant]
     Active Substance: FUROSEMIDE
     Indication: POLYURIA
     Dosage: 80 MG, PRN
     Route: 042
     Dates: start: 20170228, end: 20170228
  30. FUROSEMIDE. [Concomitant]
     Active Substance: FUROSEMIDE
     Indication: POLYURIA
     Dosage: 20 MG, BID
     Route: 048
     Dates: start: 20170313
  31. HEPATITIS B IMMUNE GLOBULIN [Concomitant]
     Active Substance: HUMAN HEPATITIS B VIRUS IMMUNE GLOBULIN
     Indication: PROPHYLAXIS
     Dosage: 400 IU, PRN
     Route: 030
     Dates: start: 20170301, end: 20170301
  32. MAGNESIUM SULFATE. [Concomitant]
     Active Substance: MAGNESIUM SULFATE
     Indication: ELECTROLYTE IMBALANCE
     Dosage: 3.2 ML, PRN
     Route: 042
     Dates: start: 20170228, end: 20170228
  33. SODIUM BICARBONATE. [Concomitant]
     Active Substance: SODIUM BICARBONATE
     Indication: ELECTROLYTE IMBALANCE
     Dosage: 125 ML, PRN
     Route: 042
     Dates: start: 20170228, end: 20170228
  34. SODIUM BICARBONATE. [Concomitant]
     Active Substance: SODIUM BICARBONATE
     Dosage: 250 ML, PRN
     Route: 042
     Dates: start: 20170301, end: 20170301
  35. CLOSTRIDIUM BUTYRICUM [Concomitant]
     Active Substance: CLOSTRIDIUM BUTYRICUM SPORES STRAIN M-55
     Indication: PROPHYLAXIS
     Dosage: 40 MG, TID
     Route: 048
     Dates: start: 20170303, end: 20170313
  36. CASPOFUNGIN ACETATE. [Concomitant]
     Active Substance: CASPOFUNGIN ACETATE
     Indication: PROPHYLAXIS
     Dosage: 50 MG, QD
     Route: 042
     Dates: start: 20170228, end: 20170307
  37. MYFORTIC [Suspect]
     Active Substance: MYCOPHENOLATE SODIUM
     Indication: RENAL TRANSPLANT
     Dosage: 1440 MG, QD
     Route: 065
     Dates: start: 20170228, end: 20170228
  38. MYFORTIC [Suspect]
     Active Substance: MYCOPHENOLATE SODIUM
     Dosage: 1440 MG, QD
     Route: 065
     Dates: start: 20170305, end: 20170323
  39. METHYLPREDNISOLONE. [Suspect]
     Active Substance: METHYLPREDNISOLONE
     Dosage: 20 MG, QD
     Route: 065
     Dates: start: 20170308, end: 20170313
  40. TACROLIMUS. [Suspect]
     Active Substance: TACROLIMUS
     Dosage: 4 MG, QD
     Route: 065
     Dates: start: 20170323, end: 20170323
  41. DEXAMETHASONE. [Concomitant]
     Active Substance: DEXAMETHASONE
     Indication: PROPHYLAXIS
     Dosage: 10 MG, PRN
     Route: 042
     Dates: start: 20170228, end: 20170228
  42. DIAZEPAM. [Concomitant]
     Active Substance: DIAZEPAM
     Dosage: 2.5 MG, PRN
     Route: 048
     Dates: start: 20170324, end: 20170324
  43. FUROSEMIDE. [Concomitant]
     Active Substance: FUROSEMIDE
     Dosage: 40 MG, BID
     Route: 042
     Dates: start: 20170301, end: 20170306
  44. NORVASC [Concomitant]
     Active Substance: AMLODIPINE BESYLATE
     Dosage: 5 MG, QD
     Route: 048
     Dates: start: 20170305
  45. NORVASC [Concomitant]
     Active Substance: AMLODIPINE BESYLATE
     Dosage: 5 MG, BID
     Route: 048
     Dates: start: 20170323, end: 20170331
  46. MONTMORILLONITE [Concomitant]
     Active Substance: MONTMORILLONITE
     Indication: PROPHYLAXIS
     Dosage: 3000 MG, BID
     Route: 048
     Dates: start: 20170303, end: 20170304
  47. HYDROTALCITE [Concomitant]
     Active Substance: HYDROTALCITE
     Indication: PROPHYLAXIS
     Dosage: 1000 MG, QD
     Route: 048
     Dates: start: 20170301
  48. MYFORTIC [Suspect]
     Active Substance: MYCOPHENOLATE SODIUM
     Indication: PROPHYLAXIS
     Dosage: 2160 MG, QD
     Route: 065
     Dates: start: 20170228, end: 20170304
  49. BASILIXIMAB [Suspect]
     Active Substance: BASILIXIMAB
     Dosage: 20 MG, QD
     Route: 065
     Dates: start: 20170304, end: 20170304
  50. PREDNISONE. [Suspect]
     Active Substance: PREDNISONE
     Indication: IMMUNOSUPPRESSANT DRUG THERAPY
     Dosage: 15 MG, QD
     Route: 065
     Dates: start: 20170313, end: 20170323
  51. TACROLIMUS. [Suspect]
     Active Substance: TACROLIMUS
     Dosage: 3.5 MG, QD
     Route: 065
     Dates: start: 20170411
  52. ALPRAZOLAM. [Concomitant]
     Active Substance: ALPRAZOLAM
     Indication: SEDATION
     Dosage: 0.4 MG, QD
     Route: 048
     Dates: start: 20170301, end: 20170313
  53. PROMETHAZINE [Concomitant]
     Active Substance: PROMETHAZINE\PROMETHAZINE HYDROCHLORIDE
     Indication: SEDATION
     Dosage: 2 DF, TID
     Route: 048
     Dates: start: 20170301, end: 20170313
  54. FUROSEMIDE. [Concomitant]
     Active Substance: FUROSEMIDE
     Dosage: 20 MG, PRN
     Route: 042
     Dates: start: 20170301, end: 20170301
  55. GLUCOSE [Concomitant]
     Active Substance: DEXTROSE
     Indication: FLUID IMBALANCE
     Dosage: 500 ML, PRN
     Route: 042
     Dates: start: 20170301, end: 20170301
  56. SODIUM PHOSPHATE [Concomitant]
     Active Substance: SODIUM PHOSPHATE
     Indication: PRODUCT USED FOR UNKNOWN INDICATION
     Dosage: 133 MG, PRN
     Route: 054
     Dates: start: 20170228, end: 20170228
  57. MYFORTIC [Suspect]
     Active Substance: MYCOPHENOLATE SODIUM
     Dosage: 1080 MG, QD
     Route: 065
     Dates: start: 20170324
  58. TACROLIMUS. [Suspect]
     Active Substance: TACROLIMUS
     Dosage: 5 MG, QD
     Route: 065
     Dates: start: 20170306, end: 20170307
  59. SULFAMETHOXAZOLE [Concomitant]
     Active Substance: SULFAMETHOXAZOLE
     Indication: INFECTION PROPHYLAXIS
     Dosage: 240 MG, QD
     Route: 048
     Dates: start: 20170313
  60. MAGNESIUM SULFATE. [Concomitant]
     Active Substance: MAGNESIUM SULFATE
     Dosage: 1.6 ML, PRN
     Route: 042
     Dates: start: 20170301, end: 20170301
  61. NORVASC [Concomitant]
     Active Substance: AMLODIPINE BESYLATE
     Dosage: 5 MG, QD
     Route: 048
     Dates: start: 20170401, end: 20170406
  62. POTASSIUM CHLORIDE. [Concomitant]
     Active Substance: POTASSIUM CHLORIDE
     Indication: PROPHYLAXIS
     Dosage: 500 MG, TID
     Route: 048
     Dates: start: 20170305, end: 20170305
  63. BERAPROST [Concomitant]
     Active Substance: BERAPROST
     Indication: ARTERIAL OCCLUSIVE DISEASE
     Dosage: 20 UG, BID
     Route: 048
     Dates: start: 20170411
  64. POLYSACCHARIDE-IRON COMPLEX [Concomitant]
     Indication: SUPPLEMENTATION THERAPY
     Dosage: 150 MG, QD
     Route: 048
     Dates: start: 20170409
  65. BASILIXIMAB [Suspect]
     Active Substance: BASILIXIMAB
     Indication: RENAL TRANSPLANT
     Dosage: 20 MG, QD
     Route: 065
     Dates: start: 20170228, end: 20170228
  66. METHYLPREDNISOLONE. [Suspect]
     Active Substance: METHYLPREDNISOLONE
     Indication: IMMUNOSUPPRESSANT DRUG THERAPY
     Dosage: 740 MG, QD
     Route: 065
     Dates: start: 20170228, end: 20170228
  67. CANCIDAS [Concomitant]
     Active Substance: CASPOFUNGIN ACETATE
     Indication: INFECTION PROPHYLAXIS
     Dosage: 50 MG, QD
     Route: 042
     Dates: start: 20170228, end: 20170307
  68. CALCIUM GLUCONATE. [Concomitant]
     Active Substance: CALCIUM GLUCONATE
     Indication: PROPHYLAXIS
     Dosage: 1000 MG, PRN
     Route: 042
     Dates: start: 20170228, end: 20170228
  69. BICYCLOL [Concomitant]
     Active Substance: BICYCLOL
     Dosage: 50 MG, TID
     Route: 048
     Dates: start: 20170324
  70. DIAZEPAM. [Concomitant]
     Active Substance: DIAZEPAM
     Indication: SEDATION
     Dosage: 5 MG, PRN
     Route: 048
     Dates: start: 20170228, end: 20170228
  71. METOPROLOL SUCCINATE. [Concomitant]
     Active Substance: METOPROLOL SUCCINATE
     Indication: BLOOD PRESSURE INCREASED
     Dosage: 47.5 MG, QD
     Route: 048
     Dates: start: 20170306, end: 20170306
  72. SODIUM BICARBONATE. [Concomitant]
     Active Substance: SODIUM BICARBONATE
     Dosage: 250 ML, PRN
     Route: 042
     Dates: start: 20170228, end: 20170228
  73. SPIRONOLACTONE. [Concomitant]
     Active Substance: SPIRONOLACTONE
     Indication: BLOOD PRESSURE INCREASED
     Dosage: 20 MG, TID
     Route: 048
     Dates: start: 20170313
  74. LINEZOLID. [Concomitant]
     Active Substance: LINEZOLID
     Indication: PRODUCT USED FOR UNKNOWN INDICATION
     Dosage: 600 MG, QD (INJECTION)
     Route: 042
     Dates: start: 20170324, end: 20170401
  75. OMEPRAZOLE SODIUM [Concomitant]
     Active Substance: OMEPRAZOLE SODIUM
     Indication: PROPHYLAXIS
     Dosage: 20 MG, BID
     Dates: start: 20170411
  76. NEXIUM [Concomitant]
     Active Substance: ESOMEPRAZOLE MAGNESIUM
     Indication: PROPHYLAXIS
     Dosage: 40 MG, BID
     Route: 042
     Dates: start: 20170301, end: 20170313
  77. METHYLPREDNISOLONE. [Suspect]
     Active Substance: METHYLPREDNISOLONE
     Dosage: 620 MG, QD
     Route: 065
     Dates: start: 20170301, end: 20170302
  78. TACROLIMUS. [Suspect]
     Active Substance: TACROLIMUS
     Dosage: 4 MG, QD
     Route: 065
     Dates: start: 20170308, end: 20170312
  79. CLONIDINE. [Concomitant]
     Active Substance: CLONIDINE
     Indication: BLOOD PRESSURE INCREASED
     Dosage: 75 UG, PRN
     Route: 048
     Dates: start: 20170301, end: 20170301
  80. CLONIDINE. [Concomitant]
     Active Substance: CLONIDINE
     Dosage: 75 MG, TID
     Route: 048
     Dates: start: 20170323, end: 20170324
  81. INSULIN [Concomitant]
     Active Substance: INSULIN NOS
     Indication: BLOOD GLUCOSE ABNORMAL
     Dosage: 6 IU, PRN
     Route: 042
     Dates: start: 20170228, end: 20170228
  82. MANNITOL. [Concomitant]
     Active Substance: MANNITOL
     Indication: PROPHYLAXIS
     Dosage: 125 ML, PRN
     Route: 042
     Dates: start: 20170228, end: 20170228
  83. MARZULENE-S [Concomitant]
     Active Substance: SODIUM GUALENATE
     Indication: GASTRITIS PROPHYLAXIS
     Dosage: 670 MG, TID
     Route: 048
     Dates: start: 20170301, end: 20170313
  84. PIPERACILINA+TAZOBACTAM [Concomitant]
     Active Substance: PIPERACILLIN SODIUM\TAZOBACTAM SODIUM
     Indication: INFECTION PROPHYLAXIS
     Dosage: 4500 MG, QD
     Route: 042
     Dates: start: 20170228, end: 20170307
  85. POTASSIUM CHLORIDE. [Concomitant]
     Active Substance: POTASSIUM CHLORIDE
     Dosage: 500 MG, TID
     Route: 048
     Dates: start: 20170306, end: 20170313
  86. TALCID [Concomitant]
     Active Substance: HYDROTALCITE
     Indication: GASTRITIS PROPHYLAXIS
     Dosage: 1000 MG, QD
     Route: 048
     Dates: start: 20170301
  87. LINEZOLID. [Concomitant]
     Active Substance: LINEZOLID
     Dosage: 600 MG, QD (TABLET)
     Route: 048
     Dates: start: 20170401
  88. AMLODIPINE BESYLATE. [Concomitant]
     Active Substance: AMLODIPINE BESYLATE
     Indication: PROPHYLAXIS
     Dosage: 5 MG, QD
     Route: 048
     Dates: start: 20170301, end: 20170304

REACTIONS (9)
  - Lymphocyte count decreased [Unknown]
  - Anaemia [Recovered/Resolved]
  - Hypoalbuminaemia [Recovering/Resolving]
  - Overdose [Recovering/Resolving]
  - Wound complication [Recovering/Resolving]
  - Blood urea increased [Unknown]
  - Hepatic function abnormal [Recovered/Resolved]
  - Haemoglobin decreased [Unknown]
  - Diarrhoea [Recovering/Resolving]

NARRATIVE: CASE EVENT DATE: 20170228
